FAERS Safety Report 12643182 (Version 1)
Quarter: 2016Q3

REPORT INFORMATION
  Report Type: Spontaneous
  Country: US (occurrence: US)
  Receive Date: 20160811
  Receipt Date: 20160811
  Transmission Date: 20161109
  Serious: Yes (Other)
  Sender: FDA-Public Use
  Company Number: US-SUN PHARMACEUTICAL INDUSTRIES LTD-2016US-121772

PATIENT
  Age: 15 Year
  Sex: Female

DRUGS (2)
  1. METHYLPHENIDATE. [Suspect]
     Active Substance: METHYLPHENIDATE
     Indication: ATTENTION DEFICIT/HYPERACTIVITY DISORDER
     Dosage: 27 MG, DAILY
     Route: 065
  2. METHYLPHENIDATE. [Suspect]
     Active Substance: METHYLPHENIDATE
     Dosage: UNK

REACTIONS (2)
  - Dystonia [Recovering/Resolving]
  - Muscle contractions involuntary [Recovered/Resolved]
